FAERS Safety Report 5661877-5 (Version None)
Quarter: 2008Q1

REPORT INFORMATION
  Report Type: 
  Country: None (occurrence: None)
  Receive Date: 20080312
  Receipt Date: 20080227
  Transmission Date: 20080703
  Serious: Yes (Hospitalization)
  Sender: FDA-Public Use
  Company Number: IN-ELI_LILLY_AND_COMPANY-IN200802004040

PATIENT
  Sex: Female

DRUGS (9)
  1. GEMCITABINE HCL [Suspect]
     Indication: BREAST CANCER METASTATIC
     Dosage: 1250 MG/M2, (1912MG), D1 AND D8/21 DAYS
     Route: 042
     Dates: start: 20070921
  2. PACLITAXEL [Suspect]
     Indication: BREAST CANCER METASTATIC
     Dosage: 175 MG/M2, (267 MG),OTHER, D1/21 DAYS
     Route: 042
     Dates: start: 20070921
  3. ATIVAN [Concomitant]
     Dosage: UNK, UNKNOWN
     Route: 065
     Dates: start: 20080207, end: 20080207
  4. GRANISETRON [Concomitant]
     Dosage: UNK, UNKNOWN
     Route: 065
     Dates: start: 20080207, end: 20080207
  5. GRANISETRON [Concomitant]
     Dosage: UNK, UNKNOWN
     Route: 065
     Dates: start: 20080207, end: 20080209
  6. DEXONA [Concomitant]
     Dosage: UNK, UNKNOWN
     Route: 065
     Dates: start: 20080207, end: 20080207
  7. DEXONA [Concomitant]
     Dosage: UNK, UNKNOWN
     Route: 065
     Dates: start: 20080207, end: 20080209
  8. REGLAN [Concomitant]
     Dosage: UNK, UNKNOWN
     Route: 065
     Dates: start: 20080207, end: 20080207
  9. RANITIDINE [Concomitant]
     Dosage: UNK, UNKNOWN
     Route: 065
     Dates: start: 20080207, end: 20080207

REACTIONS (4)
  - BLOOD CREATININE INCREASED [None]
  - GASTROENTERITIS [None]
  - HYPOTENSION [None]
  - HYPOVOLAEMIA [None]
